FAERS Safety Report 6252420-0 (Version None)
Quarter: 2009Q3

REPORT INFORMATION
  Report Type: 
  Country: None (occurrence: None)
  Receive Date: 20090701
  Receipt Date: 20090622
  Transmission Date: 20100115
  Serious: No
  Sender: FDA-Public Use
  Company Number: US-JNJFOC-20090609520

PATIENT
  Sex: Female
  Weight: 62.14 kg

DRUGS (4)
  1. DURAGESIC-100 [Suspect]
     Indication: BACK PAIN
     Route: 062
  2. NABUMETONE [Concomitant]
     Indication: ANTIINFLAMMATORY THERAPY
  3. CLONAPAM [Concomitant]
     Indication: ANXIETY
     Route: 048
  4. UNKNOWN MEDICATION [Concomitant]
     Indication: MUSCLE RELAXANT THERAPY

REACTIONS (5)
  - DRUG DOSE OMISSION [None]
  - INADEQUATE ANALGESIA [None]
  - INAPPROPRIATE SCHEDULE OF DRUG ADMINISTRATION [None]
  - PRODUCT QUALITY ISSUE [None]
  - WRONG TECHNIQUE IN DRUG USAGE PROCESS [None]
